FAERS Safety Report 6195931-9 (Version None)
Quarter: 2009Q2

REPORT INFORMATION
  Report Type: 
  Country: None (occurrence: None)
  Receive Date: 20090520
  Receipt Date: 20090511
  Transmission Date: 20091009
  Serious: Yes (Death, Other)
  Sender: FDA-Public Use
  Company Number: US-PFIZER INC-2008069841

PATIENT
  Sex: Male

DRUGS (1)
  1. CHANTIX [Suspect]
     Dates: start: 20070701

REACTIONS (4)
  - COMPLETED SUICIDE [None]
  - DEPRESSED MOOD [None]
  - GUN SHOT WOUND [None]
  - INJURY [None]
